FAERS Safety Report 25396185 (Version 2)
Quarter: 2025Q3

REPORT INFORMATION
  Report Type: Spontaneous
  Country: US (occurrence: US)
  Receive Date: 20250604
  Receipt Date: 20250716
  Transmission Date: 20251020
  Serious: No
  Sender: TEVA
  Company Number: US-TEVA-VS-3334730

PATIENT
  Age: 59 Year
  Sex: Female

DRUGS (1)
  1. DEXTROAMPHETAMINE SACCHARATE, AMPHETAMINE ASPARTATE, DEXTROAMPHETAMINE [Suspect]
     Active Substance: AMPHETAMINE ASPARTATE\AMPHETAMINE SULFATE\DEXTROAMPHETAMINE SACCHARATE\DEXTROAMPHETAMINE SULFATE
     Indication: Attention deficit hyperactivity disorder
     Route: 048

REACTIONS (7)
  - Aphthous ulcer [Recovered/Resolved]
  - Urticaria [Recovered/Resolved]
  - Feeling abnormal [Unknown]
  - Abdominal distension [Unknown]
  - Miosis [Unknown]
  - Chest pain [Unknown]
  - Condition aggravated [Unknown]
